FAERS Safety Report 7755762-2 (Version None)
Quarter: 2011Q3

REPORT INFORMATION
  Report Type: 
  Country: None (occurrence: None)
  Receive Date: 20110916
  Receipt Date: 20110913
  Transmission Date: 20111222
  Serious: Yes (Other)
  Sender: FDA-Public Use
  Company Number: PHHY2011CH82031

PATIENT
  Age: 48 Year
  Sex: Female

DRUGS (1)
  1. ZOMETA [Suspect]
     Indication: BREAST CANCER
     Dosage: 4 MG, QMO
     Dates: start: 20080901, end: 20110322

REACTIONS (5)
  - INFLAMMATION [None]
  - BACTERIAL INFECTION [None]
  - OSTEONECROSIS [None]
  - FIBROSIS [None]
  - OSTEONECROSIS OF JAW [None]
